FAERS Safety Report 16337471 (Version 1)
Quarter: 2019Q2

REPORT INFORMATION
  Report Type: Spontaneous
  Country: US (occurrence: US)
  Receive Date: 20190521
  Receipt Date: 20190521
  Transmission Date: 20190711
  Serious: No
  Sender: FDA-Public Use
  Company Number: US-PFIZER INC-2019214607

PATIENT
  Age: 49 Year
  Sex: Male

DRUGS (1)
  1. TEMSIROLIMUS. [Suspect]
     Active Substance: TEMSIROLIMUS
     Indication: COLORECTAL CANCER
     Dosage: UNK

REACTIONS (1)
  - Nipple disorder [Unknown]
